FAERS Safety Report 9667896 (Version 1)
Quarter: 2013Q4

REPORT INFORMATION
  Report Type: Spontaneous
  Country: US (occurrence: US)
  Receive Date: 20131104
  Receipt Date: 20131104
  Transmission Date: 20140711
  Serious: Yes (Hospitalization)
  Sender: FDA-Public Use
  Company Number: US-PFIZER INC-2013310338

PATIENT
  Sex: Male

DRUGS (2)
  1. QUILLIVANT XR [Suspect]
     Dosage: UNK
  2. LYSERGIDE [Suspect]
     Dosage: UNK

REACTIONS (2)
  - Delusion [Unknown]
  - Mood altered [Unknown]
